FAERS Safety Report 5083211-4 (Version None)
Quarter: 2006Q3

REPORT INFORMATION
  Report Type: 
  Country: None (occurrence: None)
  Receive Date: 20060816
  Receipt Date: 20060816
  Transmission Date: 20061208
  Serious: No
  Sender: FDA-Public Use
  Company Number: None

PATIENT
  Sex: Female
  Weight: 22 kg

DRUGS (4)
  1. CLARITIN [Suspect]
     Indication: DERMATITIS ATOPIC
     Dosage: 10MG ONCE A DAY ORAL
     Route: 048
     Dates: start: 20060716
  2. CLARITIN [Suspect]
     Indication: RHINITIS ALLERGIC
     Dosage: 10MG ONCE A DAY ORAL
     Route: 048
     Dates: start: 20060716
  3. RHINOCORT [Concomitant]
  4. ELIDEL [Concomitant]

REACTIONS (3)
  - ABDOMINAL PAIN UPPER [None]
  - HEADACHE [None]
  - PARAESTHESIA [None]
